FAERS Safety Report 5524478-5 (Version None)
Quarter: 2007Q4

REPORT INFORMATION
  Report Type: 
  Country: None (occurrence: None)
  Receive Date: 20071122
  Receipt Date: 20071112
  Transmission Date: 20080405
  Serious: Yes (Hospitalization)
  Sender: FDA-Public Use
  Company Number: PHHY2007CH00535

PATIENT
  Age: 39 Year
  Sex: Male

DRUGS (4)
  1. TEGRETOL [Suspect]
     Indication: PSYCHOTIC DISORDER
     Dosage: 600 MG/DAY
     Route: 048
     Dates: end: 20070615
  2. ZYPREXA [Concomitant]
     Indication: PSYCHOTIC DISORDER
     Dosage: 5 MG/DAY
     Dates: start: 20070608
  3. AMITRIPTYLINE HCL [Concomitant]
     Indication: PSYCHOTIC DISORDER
     Dosage: 50 MG/DAY
     Dates: start: 20070609
  4. LORAZEPAM [Concomitant]
     Dosage: 1-2 MG/DAY
     Dates: start: 20070606, end: 20070618

REACTIONS (4)
  - HYPOVITAMINOSIS [None]
  - MALNUTRITION [None]
  - OSTEOMALACIA [None]
  - SOMATOFORM DISORDER [None]
